FAERS Safety Report 8003030-6 (Version None)
Quarter: 2011Q4

REPORT INFORMATION
  Report Type: 
  Country: None (occurrence: None)
  Receive Date: 20111222
  Receipt Date: 20110930
  Transmission Date: 20120403
  Serious: No
  Sender: FDA-Public Use
  Company Number: US-GLAXOSMITHKLINE-A0946612A

PATIENT
  Age: 75 Year
  Sex: Male

DRUGS (5)
  1. AVODART [Suspect]
     Indication: URINE FLOW DECREASED
     Dosage: 1CAP PER DAY
     Route: 048
     Dates: start: 20110301, end: 20110801
  2. PAXIL [Concomitant]
  3. ZOCOR [Concomitant]
  4. PLAVIX [Concomitant]
  5. BYSTOLIC [Concomitant]

REACTIONS (1)
  - GYNAECOMASTIA [None]
